FAERS Safety Report 5084316-4 (Version None)
Quarter: 2006Q3

REPORT INFORMATION
  Report Type: 
  Country: None (occurrence: None)
  Receive Date: 20060817
  Receipt Date: 20060817
  Transmission Date: 20061208
  Serious: Yes (Hospitalization)
  Sender: FDA-Public Use
  Company Number: None

PATIENT
  Age: 84 Year
  Sex: Female
  Weight: 59 kg

DRUGS (2)
  1. ANAGRELIDE HCL [Suspect]
     Indication: MYELOPROLIFERATIVE DISORDER
     Dates: start: 20051129
  2. ANAGRELIDE HCL [Suspect]
     Indication: PLATELET COUNT INCREASED
     Dates: start: 20051129

REACTIONS (1)
  - CARDIAC FAILURE CONGESTIVE [None]
